FAERS Safety Report 20950354 (Version 1)
Quarter: 2022Q2

REPORT INFORMATION
  Report Type: Spontaneous
  Country: US (occurrence: None)
  Receive Date: 20220610
  Receipt Date: 20220610
  Transmission Date: 20220721
  Serious: Yes (Hospitalization)
  Sender: FDA-Public Use
  Company Number: None

PATIENT
  Age: 67 Year
  Sex: Female

DRUGS (1)
  1. EVEROLIMUS [Suspect]
     Active Substance: EVEROLIMUS
     Dosage: FREQUENCY : DAILY;?
     Route: 048
     Dates: start: 202206, end: 202206

REACTIONS (12)
  - Renal failure [None]
  - Dialysis [None]
  - Blood magnesium decreased [None]
  - Blood potassium decreased [None]
  - Decreased appetite [None]
  - Vomiting [None]
  - Fluid intake reduced [None]
  - Middle insomnia [None]
  - Hiatus hernia [None]
  - Chest pain [None]
  - Hyperhidrosis [None]
  - Arthralgia [None]

NARRATIVE: CASE EVENT DATE: 20220610
